FAERS Safety Report 7628188-X (Version None)
Quarter: 2011Q3

REPORT INFORMATION
  Report Type: 
  Country: None (occurrence: None)
  Receive Date: 20110722
  Receipt Date: 20101223
  Transmission Date: 20111222
  Serious: No
  Sender: FDA-Public Use
  Company Number: US-BAYER-2011-006026

PATIENT
  Sex: Female

DRUGS (8)
  1. BETASERON [Suspect]
     Indication: MULTIPLE SCLEROSIS
     Dosage: 0.3 MG, QOD
     Route: 058
     Dates: start: 20100810, end: 20100928
  2. VITAMIN D [Concomitant]
     Dosage: 400 IU, QD
  3. IBUPROFEN (ADVIL) [Concomitant]
     Dosage: 200 MG TABLET, 2-4 TABLETS AS NEEDED
  4. MULTI-VITAMIN [Concomitant]
     Dosage: UNK, QD
  5. LORAZEPAM [Concomitant]
     Dosage: 0.5 MG TABLET, 1 TABLET Q6H AS NEEDED.
  6. PRELIEF [Concomitant]
     Dosage: 65 MG TABLET, 2 TABLETS AS NEEDED
  7. BACTRIM [Concomitant]
  8. CALCIUM D3 [CALCIUM,COLECALCIFEROL] [Concomitant]
     Dosage: 400 U, BID

REACTIONS (3)
  - INJECTION SITE REACTION [None]
  - URINARY TRACT INFECTION [None]
  - MALAISE [None]
